FAERS Safety Report 20447395 (Version 1)
Quarter: 2022Q1

REPORT INFORMATION
  Report Type: Spontaneous
  Country: US (occurrence: None)
  Receive Date: 20220209
  Receipt Date: 20220209
  Transmission Date: 20220423
  Serious: Yes (Other)
  Sender: FDA-Public Use
  Company Number: US-ROCHE-2912365

PATIENT
  Age: 71 Year
  Sex: Female

DRUGS (1)
  1. PRALSETINIB [Suspect]
     Active Substance: PRALSETINIB
     Indication: Non-small cell lung cancer
     Route: 065

REACTIONS (1)
  - Pneumonitis [Unknown]
